FAERS Safety Report 9712594 (Version 2)
Quarter: 2013Q4

REPORT INFORMATION
  Report Type: Spontaneous
  Country: US (occurrence: US)
  Receive Date: 20131126
  Receipt Date: 20131126
  Transmission Date: 20140711
  Serious: No
  Sender: FDA-Public Use
  Company Number: US-BRISTOL-MYERS SQUIBB COMPANY-19201409

PATIENT
  Age: 52 Year
  Sex: Female
  Weight: 108.84 kg

DRUGS (5)
  1. BYDUREON 2MG SUSPENSION [Suspect]
     Indication: TYPE 2 DIABETES MELLITUS
     Dosage: NO OF INJ:5; 73259
     Route: 058
     Dates: start: 20130721
  2. GLUCOTROL [Concomitant]
  3. JANUMET [Concomitant]
     Dosage: 1DF:50/1000MG
  4. CRESTOR [Concomitant]
  5. LISINOPRIL [Concomitant]

REACTIONS (5)
  - Injection site urticaria [Not Recovered/Not Resolved]
  - Nausea [Recovered/Resolved]
  - Injection site pruritus [Not Recovered/Not Resolved]
  - Injection site discolouration [Not Recovered/Not Resolved]
  - Injection site pain [Not Recovered/Not Resolved]
